FAERS Safety Report 5286869-X (Version None)
Quarter: 2007Q1

REPORT INFORMATION
  Report Type: 
  Country: None (occurrence: None)
  Receive Date: 20070116
  Receipt Date: 20061105
  Transmission Date: 20070707
  Serious: No
  Sender: FDA-Public Use
  Company Number: 2006SP003924

PATIENT
  Age: 76 Year
  Sex: Female
  Weight: 117.9352 kg

DRUGS (5)
  1. LUNESTA [Suspect]
     Indication: INSOMNIA
     Dosage: 3 MG, HS, ORAL
     Route: 048
     Dates: start: 20061102, end: 20061104
  2. LEXAPRO [Concomitant]
  3. DILTIAZEM [Concomitant]
  4. SIMVASTATIN [Concomitant]
  5. CELEBREX [Concomitant]

REACTIONS (1)
  - DYSGEUSIA [None]
